FAERS Safety Report 8352548-5 (Version None)
Quarter: 2012Q2

REPORT INFORMATION
  Report Type: 
  Country: None (occurrence: None)
  Receive Date: 20120509
  Receipt Date: 20120423
  Transmission Date: 20120825
  Serious: Yes (Other)
  Sender: FDA-Public Use
  Company Number: 2012R1-56036

PATIENT

DRUGS (1)
  1. PARACETAMOL (ACETMINHOPHEN/PARACETAMOL) [Suspect]
     Indication: PRODUCT USED FOR UNKNOWN INDICATION
     Dosage: UNK

REACTIONS (12)
  - RASH MACULO-PAPULAR [None]
  - STEVENS-JOHNSON SYNDROME [None]
  - DERMATITIS EXFOLIATIVE [None]
  - URTICARIA [None]
  - ACUTE FEBRILE NEUTROPHILIC DERMATOSIS [None]
  - ERYTHEMA MULTIFORME [None]
  - ANAPHYLACTIC REACTION [None]
  - DRUG ERUPTION [None]
  - PHOTOSENSITIVITY REACTION [None]
  - ANGIOEDEMA [None]
  - VASCULITIS [None]
  - TOXIC EPIDERMAL NECROLYSIS [None]
